FAERS Safety Report 26152123 (Version 4)
Quarter: 2025Q4

REPORT INFORMATION
  Report Type: Report from Study
  Country: KR (occurrence: KR)
  Receive Date: 20251214
  Receipt Date: 20251224
  Transmission Date: 20260118
  Serious: Yes (Hospitalization)
  Sender: ABBVIE
  Company Number: KR-ABBVIE-6585266

PATIENT
  Age: 71 Year
  Sex: Female
  Weight: 54 kg

DRUGS (42)
  1. RINVOQ [Suspect]
     Active Substance: UPADACITINIB
     Indication: Rheumatoid arthritis
     Dosage: FORM STRENGTH: 1 TABLET
     Route: 048
     Dates: start: 20250609, end: 20251207
  2. RINVOQ [Suspect]
     Active Substance: UPADACITINIB
     Indication: Rheumatoid arthritis
     Dosage: FORM STRENGTH: 1 TABLET
     Route: 048
     Dates: start: 2025
  3. OFEV [Concomitant]
     Active Substance: NINTEDANIB
     Indication: Interstitial lung disease
     Dosage: 150 MILLIGRAMS
     Route: 048
     Dates: start: 20250609, end: 20250904
  4. OFEV [Concomitant]
     Active Substance: NINTEDANIB
     Indication: Interstitial lung disease
     Dosage: 100 MILLIGRAM
     Route: 048
     Dates: start: 20250825, end: 2025
  5. OFEV [Concomitant]
     Active Substance: NINTEDANIB
     Indication: Interstitial lung disease
     Dosage: 100 MILLIGRAM
     Route: 048
     Dates: start: 20251209, end: 20251209
  6. OFEV [Concomitant]
     Active Substance: NINTEDANIB
     Indication: Interstitial lung disease
     Route: 048
     Dates: start: 20251210, end: 20251214
  7. Zerocid [Concomitant]
     Indication: Pain prophylaxis
     Dosage: 20/1100MG
     Route: 048
     Dates: start: 20230406
  8. KEPPRA [Concomitant]
     Active Substance: LEVETIRACETAM
     Indication: Paraesthesia
     Dosage: 250MG?STOP DATE TEXT: 2025-12-29
     Route: 048
     Dates: start: 20251210
  9. KEPPRA [Concomitant]
     Active Substance: LEVETIRACETAM
     Indication: Paraesthesia
     Dosage: 250MG
     Route: 048
     Dates: start: 20250825, end: 2025
  10. KABALIN [Concomitant]
     Indication: Paraesthesia
     Dosage: 50 MILLIGRAM
     Route: 048
     Dates: start: 20250825
  11. FUSIMED [Concomitant]
     Indication: Prophylaxis
     Dates: start: 20251215
  12. CODAEWON FORTE [Concomitant]
     Indication: Interstitial lung disease
     Dosage: TIME INTERVAL: 0.33333333 DAYS: SYRINGE, 20 MILLILITER.
     Route: 048
     Dates: start: 20250513
  13. PANTOPRAZOLE SODIUM [Concomitant]
     Active Substance: PANTOPRAZOLE SODIUM
     Indication: Gastritis prophylaxis
     Dosage: UNIT DOSE : 1VIAL
     Route: 042
     Dates: start: 20251209, end: 20251215
  14. Sinil folic acid [Concomitant]
     Indication: Rheumatoid arthritis
     Dosage: 1 MILLIGRAM
     Route: 048
     Dates: start: 20210712
  15. THEOBROMINE [Concomitant]
     Active Substance: THEOBROMINE
     Indication: Interstitial lung disease
     Dosage: 300 MILLIGRAM
     Route: 048
     Dates: start: 20221128
  16. CALTEO [Concomitant]
     Indication: Osteoporosis
     Dosage: 40
     Route: 048
     Dates: start: 20210809
  17. CELECOXIB [Concomitant]
     Active Substance: CELECOXIB
     Indication: Rheumatoid arthritis
     Route: 048
     Dates: start: 20230130
  18. CELECOXIB [Concomitant]
     Active Substance: CELECOXIB
     Indication: Rheumatoid arthritis
     Route: 048
     Dates: start: 20210712, end: 20230129
  19. DEFLAZACORT [Concomitant]
     Active Substance: DEFLAZACORT
     Indication: Rheumatoid arthritis
     Dates: start: 20210628, end: 20211101
  20. DEFLAZACORT [Concomitant]
     Active Substance: DEFLAZACORT
     Indication: Rheumatoid arthritis
     Dates: start: 20211102, end: 20220314
  21. DEFLAZACORT [Concomitant]
     Active Substance: DEFLAZACORT
     Indication: Rheumatoid arthritis
     Dates: start: 20220315, end: 20230129
  22. DEFLAZACORT [Concomitant]
     Active Substance: DEFLAZACORT
     Indication: Rheumatoid arthritis
     Dates: start: 20230406, end: 20240218
  23. DEFLAZACORT [Concomitant]
     Active Substance: DEFLAZACORT
     Indication: Rheumatoid arthritis
     Dates: start: 20230130, end: 20230405
  24. DEFLAZACORT [Concomitant]
     Active Substance: DEFLAZACORT
     Indication: Rheumatoid arthritis
     Dates: start: 20240219
  25. ULTRACET ER SEMI [Concomitant]
     Indication: Back pain
     Route: 048
     Dates: start: 20250825
  26. LEBROCOL [Concomitant]
     Indication: Interstitial lung disease
     Dosage: TIME INTERVAL: 0.33333333 DAYS: 60 MILLIGRAM
     Route: 048
     Dates: start: 20220412
  27. Esoduo [Concomitant]
     Indication: Gastritis prophylaxis
     Dosage: ESODUO TAB 20/800MG?STOP DATE TEXT: 2025-12-29
     Route: 048
     Dates: start: 20251209, end: 20251209
  28. DIABEX [Concomitant]
     Active Substance: METFORMIN HYDROCHLORIDE
     Indication: Diabetes mellitus
     Dosage: 500MG?STOP DATE TEXT: 2025-12-29
     Route: 048
     Dates: start: 20251209
  29. LASIX [Concomitant]
     Active Substance: FUROSEMIDE
     Indication: Prophylaxis
     Route: 042
     Dates: start: 20251210, end: 20251210
  30. ACETAMINOPHEN\TRAMADOL HYDROCHLORIDE [Concomitant]
     Active Substance: ACETAMINOPHEN\TRAMADOL HYDROCHLORIDE
     Indication: Pain prophylaxis
     Dosage: TIME INTERVAL: 0.33333333 DAYS
     Route: 048
     Dates: start: 20251209, end: 20251212
  31. ACETAMINOPHEN\TRAMADOL HYDROCHLORIDE [Concomitant]
     Active Substance: ACETAMINOPHEN\TRAMADOL HYDROCHLORIDE
     Indication: Pain prophylaxis
     Route: 048
     Dates: start: 20251213, end: 20251213
  32. ACETAMINOPHEN\TRAMADOL HYDROCHLORIDE [Concomitant]
     Active Substance: ACETAMINOPHEN\TRAMADOL HYDROCHLORIDE
     Indication: Pain prophylaxis
     Dosage: TIME INTERVAL: 0.33333333 DAYS: STOP DATE TEXT: 29 DEC 2025
     Route: 048
     Dates: start: 20251214, end: 20251219
  33. NORVASC [Concomitant]
     Active Substance: AMLODIPINE BESYLATE
     Indication: Hypertension
     Dosage: NORVASC TAB 10MG?STOP DATE TEXT: 2025-12-29
     Route: 048
     Dates: start: 20251214
  34. NORVASC [Concomitant]
     Active Substance: AMLODIPINE BESYLATE
     Indication: Hypertension
     Dosage: NORVASC TAB 10MG
     Route: 048
     Dates: start: 20251209, end: 20251209
  35. NEUROPACID OD [Concomitant]
     Indication: Paraesthesia
     Dosage: 600MG
     Route: 048
     Dates: start: 20251209, end: 20251209
  36. NEUROPACID OD [Concomitant]
     Indication: Paraesthesia
     Dosage: 600MG
     Route: 048
     Dates: start: 20251210
  37. PANTOPRAZOLE SODIUM [Concomitant]
     Active Substance: PANTOPRAZOLE SODIUM
     Indication: Gastritis
     Dosage: STOP DATE TEXT: 2025-12-29?TAB 40 MG
     Route: 048
     Dates: start: 20251215
  38. SOLONDO [Concomitant]
     Indication: Rheumatoid arthritis
     Dosage: STOP DATE TEXT: 2025-12-22
     Route: 048
     Dates: start: 20251216, end: 20251222
  39. Codeine guju [Concomitant]
     Indication: Cough
     Route: 048
     Dates: start: 20251212, end: 20251212
  40. Codeine guju [Concomitant]
     Indication: Cough
     Route: 048
     Dates: start: 20251209, end: 20251209
  41. Codeine guju [Concomitant]
     Indication: Cough
     Route: 048
     Dates: start: 20251213, end: 20251213
  42. Codeine guju [Concomitant]
     Indication: Cough
     Dosage: TIME INTERVAL: 0.33333333 DAYS
     Route: 048
     Dates: start: 20251214, end: 20251214

REACTIONS (1)
  - Pneumonitis [Not Recovered/Not Resolved]

NARRATIVE: CASE EVENT DATE: 20251201
